FAERS Safety Report 8227845-4 (Version None)
Quarter: 2012Q1

REPORT INFORMATION
  Report Type: 
  Country: None (occurrence: None)
  Receive Date: 20120322
  Receipt Date: 20120308
  Transmission Date: 20120608
  Serious: Yes (Hospitalization)
  Sender: FDA-Public Use
  Company Number: FR-ROCHE-1048144

PATIENT
  Sex: Male
  Weight: 80 kg

DRUGS (13)
  1. AVASTIN [Suspect]
     Indication: COLORECTAL CANCER
     Dosage: INTERRUPTED
     Route: 042
     Dates: start: 20110711
  2. IRINOTECAN HCL [Suspect]
     Indication: COLORECTAL CANCER
     Dosage: INTERRUPTED
     Route: 042
     Dates: start: 20110711, end: 20111111
  3. AVASTIN [Suspect]
     Route: 042
     Dates: start: 20111201
  4. METFORMIN HCL [Concomitant]
  5. IRINOTECAN HCL [Suspect]
     Route: 042
     Dates: start: 20120202
  6. FLUOROURACIL [Suspect]
     Route: 042
     Dates: start: 20120202
  7. EXFORGE [Concomitant]
  8. AVASTIN [Suspect]
     Route: 042
     Dates: start: 20120202
  9. FLUOROURACIL [Suspect]
     Indication: COLORECTAL CANCER
     Dosage: INTERRUPTED
     Route: 042
     Dates: start: 20110711, end: 20111111
  10. FLUOROURACIL [Suspect]
     Route: 042
     Dates: start: 20111201, end: 20120114
  11. IRINOTECAN HCL [Suspect]
     Route: 042
     Dates: start: 20111201, end: 20120114
  12. ATORVASTATIN [Concomitant]
  13. NEXIUM [Concomitant]

REACTIONS (7)
  - RENAL IMPAIRMENT [None]
  - VOMITING [None]
  - ABDOMINAL PAIN [None]
  - DIARRHOEA [None]
  - FEBRILE BONE MARROW APLASIA [None]
  - CANDIDA TEST POSITIVE [None]
  - HYPOVOLAEMIA [None]
